FAERS Safety Report 6311153-2 (Version None)
Quarter: 2009Q3

REPORT INFORMATION
  Report Type: 
  Country: None (occurrence: None)
  Receive Date: 20090817
  Receipt Date: 20090812
  Transmission Date: 20100115
  Serious: Yes (Life-Threatening, Other)
  Sender: FDA-Public Use
  Company Number: NL-B.I. PHARMACEUTICALS,INC./RIDGEFIELD-2009-NL-00468NL

PATIENT
  Sex: Female

DRUGS (1)
  1. PERSANTIN [Suspect]

REACTIONS (1)
  - PANCREATIC CARCINOMA [None]
